FAERS Safety Report 23261120 (Version 1)
Quarter: 2023Q4

REPORT INFORMATION
  Report Type: Spontaneous
  Country: US (occurrence: US)
  Receive Date: 20231205
  Receipt Date: 20231205
  Transmission Date: 20240110
  Serious: No
  Sender: FDA-Public Use
  Company Number: US-CELLTRION INC.-2023US016741

PATIENT

DRUGS (5)
  1. TRUXIMA [Suspect]
     Active Substance: RITUXIMAB-ABBS
     Indication: Product used for unknown indication
  2. RITUXAN [Concomitant]
     Active Substance: RITUXIMAB
  3. GABAPENTIN [Concomitant]
     Active Substance: GABAPENTIN
  4. TENOFOVIR [Concomitant]
     Active Substance: TENOFOVIR
  5. PREDNISONE [Concomitant]
     Active Substance: PREDNISONE

REACTIONS (1)
  - Pruritus [Unknown]
